FAERS Safety Report 8576395-4 (Version None)
Quarter: 2012Q3

REPORT INFORMATION
  Report Type: 
  Country: None (occurrence: None)
  Receive Date: 20120807
  Receipt Date: 20120801
  Transmission Date: 20120928
  Serious: Yes (Hospitalization, Congenital Anomaly, Other)
  Sender: FDA-Public Use
  Company Number: US-PFIZER INC-2010092593

PATIENT
  Age: 21 Month
  Sex: Male

DRUGS (1)
  1. ZOLOFT [Suspect]
     Dosage: UNK
     Route: 064

REACTIONS (12)
  - PATENT DUCTUS ARTERIOSUS [None]
  - ATRIAL SEPTAL DEFECT [None]
  - FOETAL EXPOSURE DURING PREGNANCY [None]
  - VENTRICULAR SEPTAL DEFECT [None]
  - PULMONARY ARTERY ATRESIA [None]
  - PULMONARY VALVE STENOSIS [None]
  - HYPOPLASTIC RIGHT HEART SYNDROME [None]
  - ATRIAL TACHYCARDIA [None]
  - TRICUSPID VALVE INCOMPETENCE [None]
  - TRICUSPID VALVE STENOSIS [None]
  - CARDIOMEGALY [None]
  - AORTIC VALVE INCOMPETENCE [None]
